FAERS Safety Report 23730009 (Version 3)
Quarter: 2024Q4

REPORT INFORMATION
  Report Type: Spontaneous
  Country: ES (occurrence: ES)
  Receive Date: 20240411
  Receipt Date: 20241211
  Transmission Date: 20250115
  Serious: Yes (Life-Threatening, Hospitalization, Other)
  Sender: TEVA
  Company Number: ES-TEVA-VS-3180224

PATIENT
  Age: 94 Year
  Sex: Female

DRUGS (2)
  1. FENTANYL [Suspect]
     Active Substance: FENTANYL
     Indication: Pain
     Route: 062
  2. ACITRETIN [Concomitant]
     Active Substance: ACITRETIN
     Indication: Psoriasis
     Route: 065

REACTIONS (9)
  - Depressed level of consciousness [Recovering/Resolving]
  - Toxicity to various agents [Recovered/Resolved]
  - Renal impairment [Unknown]
  - Dyspnoea [Unknown]
  - Weight increased [Unknown]
  - Miosis [Recovering/Resolving]
  - Cardiac failure [Recovered/Resolved]
  - Pustular psoriasis [Recovering/Resolving]
  - Fatigue [Unknown]
